FAERS Safety Report 9163536 (Version 1)
Quarter: 2013Q1

REPORT INFORMATION
  Report Type: Spontaneous
  Country: US (occurrence: US)
  Receive Date: 20130314
  Receipt Date: 20130314
  Transmission Date: 20140127
  Serious: No
  Sender: FDA-Public Use
  Company Number: US-PFIZER INC-2013084507

PATIENT
  Sex: Male

DRUGS (4)
  1. LYRICA [Suspect]
     Indication: BACK PAIN
     Dosage: UNK
  2. LYRICA [Suspect]
     Dosage: 6 HOURS APART
  3. CELEBREX [Suspect]
     Indication: BACK PAIN
     Dosage: UNK
  4. CELEBREX [Suspect]
     Dosage: 6 HOURS APART

REACTIONS (4)
  - Sleep talking [Recovered/Resolved]
  - Vertigo [Recovered/Resolved]
  - Impaired driving ability [Recovered/Resolved]
  - Off label use [Unknown]
